FAERS Safety Report 5019095-X (Version None)
Quarter: 2006Q2

REPORT INFORMATION
  Report Type: 
  Country: None (occurrence: None)
  Receive Date: 20060531
  Receipt Date: 20060517
  Transmission Date: 20061013
  Serious: Yes (Death)
  Sender: FDA-Public Use
  Company Number: US-2005-008629

PATIENT
  Age: 59 Year
  Sex: Male

DRUGS (2)
  1. BETASERON [Suspect]
     Indication: MULTIPLE SCLEROSIS
     Dosage: SUBCUTANEOUS
     Route: 058
     Dates: start: 19940420, end: 19990101
  2. ANTISPASMODICS/ANTICHOLINERGICS [Concomitant]

REACTIONS (1)
  - UROSEPSIS [None]
